FAERS Safety Report 11448910 (Version 2)
Quarter: 2015Q4

REPORT INFORMATION
  Report Type: Spontaneous
  Country: US (occurrence: US)
  Receive Date: 20150902
  Receipt Date: 20151013
  Transmission Date: 20160304
  Serious: No
  Sender: FDA-Public Use
  Company Number: US-PFIZER INC-2015289949

PATIENT
  Age: 68 Year
  Sex: Female
  Weight: 75 kg

DRUGS (1)
  1. AROMASIN [Suspect]
     Active Substance: EXEMESTANE
     Dosage: UNK ( SHE WAS NOT SURE AND MENTIONED AS 25 OR 40 MGS FURTHER ADDED THAT IT IS A TINY PILL)
     Dates: start: 20150601

REACTIONS (1)
  - Drug ineffective [Unknown]
